FAERS Safety Report 6953829-X (Version None)
Quarter: 2010Q3

REPORT INFORMATION
  Report Type: 
  Country: None (occurrence: None)
  Receive Date: 20100829
  Receipt Date: 20100625
  Transmission Date: 20110219
  Serious: No
  Sender: FDA-Public Use
  Company Number: US-ABBOTT-10P-163-0653570-00

PATIENT
  Sex: Male
  Weight: 81.72 kg

DRUGS (1)
  1. NIASPAN [Suspect]
     Indication: LOW DENSITY LIPOPROTEIN INCREASED
     Dates: start: 20100401

REACTIONS (5)
  - COUGH [None]
  - DIZZINESS [None]
  - FLUSHING [None]
  - RHINORRHOEA [None]
  - SENSORY DISTURBANCE [None]
